FAERS Safety Report 8991685 (Version 1)
Quarter: 2012Q4

REPORT INFORMATION
  Report Type: 
  Country: US (occurrence: US)
  Receive Date: 20121231
  Receipt Date: 20121231
  Transmission Date: 20130627
  Serious: No
  Sender: FDA-Public Use
  Company Number: US-BIOGENIDEC-2012BI064319

PATIENT
  Sex: Female

DRUGS (1)
  1. TYSABRI [Suspect]
     Indication: MULTIPLE SCLEROSIS
     Route: 042
     Dates: start: 20110705

REACTIONS (7)
  - Visual acuity reduced [Not Recovered/Not Resolved]
  - Mental impairment [Recovered/Resolved]
  - Pain [Not Recovered/Not Resolved]
  - Pain in extremity [Recovered/Resolved]
  - Spinal pain [Recovered/Resolved]
  - Loss of control of legs [Recovered/Resolved]
  - Multiple sclerosis relapse [Recovered/Resolved]
